FAERS Safety Report 5905894-6 (Version None)
Quarter: 2008Q4

REPORT INFORMATION
  Report Type: 
  Country: None (occurrence: None)
  Receive Date: 20081001
  Receipt Date: 20081001
  Transmission Date: 20090506
  Serious: Yes (Disabling)
  Sender: FDA-Public Use
  Company Number: None

PATIENT
  Age: 54 Year
  Sex: Female
  Weight: 87.9978 kg

DRUGS (3)
  1. TAXOTERE [Suspect]
     Indication: BREAST CANCER
     Dosage: 143 MG
     Dates: start: 20080827, end: 20080827
  2. TAXOTERE [Suspect]
     Dosage: 75 MG/M2
     Dates: start: 20080908, end: 20080908
  3. CYTOXAN [Concomitant]

REACTIONS (1)
  - DRUG HYPERSENSITIVITY [None]
